FAERS Safety Report 14632817 (Version 1)
Quarter: 2018Q1

REPORT INFORMATION
  Report Type: Spontaneous
  Country: CH (occurrence: CH)
  Receive Date: 20180313
  Receipt Date: 20180313
  Transmission Date: 20180509
  Serious: Yes (Death, Hospitalization)
  Sender: FDA-Public Use
  Company Number: PHHY2018CH033838

PATIENT
  Age: 87 Year
  Sex: Female

DRUGS (5)
  1. DIGOXIN-SANDOZ [Suspect]
     Active Substance: DIGOXIN
     Indication: ATRIAL FIBRILLATION
     Dosage: 0.125 MG, QD
     Route: 048
     Dates: end: 20171207
  2. COVERSUM N COMBI [Suspect]
     Active Substance: INDAPAMIDE\PERINDOPRIL ARGININE
     Indication: PRODUCT USED FOR UNKNOWN INDICATION
     Dosage: 1 DF, QD
     Route: 048
     Dates: end: 20171207
  3. ASPIRIN CARDIO [Suspect]
     Active Substance: ASPIRIN
     Indication: PRODUCT USED FOR UNKNOWN INDICATION
     Dosage: 100 MG, QD
     Route: 048
  4. AMLODIPINE [Suspect]
     Active Substance: AMLODIPINE BESYLATE
     Indication: PRODUCT USED FOR UNKNOWN INDICATION
     Dosage: 5 MG, QD
     Route: 048
     Dates: end: 20171207
  5. BILOL [Suspect]
     Active Substance: BISOPROLOL
     Indication: PRODUCT USED FOR UNKNOWN INDICATION
     Dosage: 2.5 MG, QD
     Route: 048
     Dates: end: 20171207

REACTIONS (14)
  - Torsade de pointes [Fatal]
  - Hypokalaemia [Unknown]
  - Asthenia [Unknown]
  - Nausea [Unknown]
  - Visual impairment [Unknown]
  - Bradycardia [Unknown]
  - Ventricular fibrillation [Fatal]
  - Weight decreased [Unknown]
  - Urine abnormality [Unknown]
  - Pyrexia [Unknown]
  - Hypotension [Unknown]
  - Somnolence [Unknown]
  - Cardioactive drug level increased [Unknown]
  - Oliguria [Unknown]

NARRATIVE: CASE EVENT DATE: 201711
